FAERS Safety Report 5635785-X (Version None)
Quarter: 2008Q1

REPORT INFORMATION
  Report Type: 
  Country: None (occurrence: None)
  Receive Date: 20080221
  Receipt Date: 20080206
  Transmission Date: 20080703
  Serious: Yes (Other)
  Sender: FDA-Public Use
  Company Number: S08-SWI-00608-01

PATIENT
  Sex: Female

DRUGS (5)
  1. ESCITALOPRAM [Suspect]
     Dosage: 10 MG QD PO
     Route: 048
  2. TRYPTIZOL (AMITRIPTYLINE HYDROCHLORIDE) [Suspect]
  3. REMERON [Suspect]
  4. METO ZEROK (METOPROLOL SUCCINATE) [Suspect]
  5. LORAZEPAM [Suspect]
     Dosage: 1 MG QD PO
     Route: 048

REACTIONS (2)
  - DRUG INTERACTION [None]
  - SEROTONIN SYNDROME [None]
